FAERS Safety Report 25396148 (Version 1)
Quarter: 2025Q2

REPORT INFORMATION
  Report Type: Report from Study
  Country: CA (occurrence: CA)
  Receive Date: 20250604
  Receipt Date: 20250604
  Transmission Date: 20250717
  Serious: Yes (Other)
  Sender: SANDOZ
  Company Number: CA-SANDOZ-SDZ2024CA062285

PATIENT
  Age: 64 Year
  Sex: Male

DRUGS (1)
  1. HYRIMOZ [Suspect]
     Active Substance: ADALIMUMAB-ADAZ
     Indication: Crohn^s disease
     Dosage: 40 MG, Q2W
     Route: 058
     Dates: start: 20220609

REACTIONS (3)
  - Myocardial infarction [Unknown]
  - Faeces soft [Unknown]
  - Depressed mood [Unknown]

NARRATIVE: CASE EVENT DATE: 20240218
